FAERS Safety Report 6784115-9 (Version None)
Quarter: 2010Q2

REPORT INFORMATION
  Report Type: 
  Country: None (occurrence: None)
  Receive Date: 20100617
  Receipt Date: 20100603
  Transmission Date: 20101027
  Serious: Yes (Other)
  Sender: FDA-Public Use
  Company Number: 1000014444

PATIENT
  Sex: Male
  Weight: 2.5 kg

DRUGS (6)
  1. ESCITALOPRAM [Suspect]
     Dosage: 10 MG (10 MG, 1 IN 1 D), TRANSPLACENTAL; 5 MG (5MG, 1 IN 1 D), ORAL
     Route: 048
     Dates: start: 20090201, end: 20090201
  2. ESCITALOPRAM [Suspect]
     Dosage: 10 MG (10 MG, 1 IN 1 D), TRANSPLACENTAL; 5 MG (5MG, 1 IN 1 D), ORAL
     Route: 048
     Dates: start: 20090101, end: 20090806
  3. BUSPAR [Suspect]
     Dosage: 30 MG (10 MG, 3 IN 1 D), TRANSPLANCENTAL
     Route: 064
     Dates: start: 20080101, end: 20090201
  4. EFFEXOR [Suspect]
     Dosage: 75 MG (75 MG, 1 IN 1 D), TRANSPLACENTAL
     Route: 064
     Dates: start: 20081201, end: 20090201
  5. SERESTA [Suspect]
     Dosage: 15 MG (15 MG, 1 IN 1 D), TRANSPLACENTAL
     Route: 064
     Dates: start: 20090201, end: 20090201
  6. TRAZODONE HCL [Suspect]
     Dosage: 50 MG, TRANSPLACENTAL
     Route: 064
     Dates: start: 20080101, end: 20090201

REACTIONS (2)
  - MATERNAL DRUGS AFFECTING FOETUS [None]
  - RESPIRATORY DISORDER NEONATAL [None]
